FAERS Safety Report 24291564 (Version 1)
Quarter: 2024Q3

REPORT INFORMATION
  Report Type: Spontaneous
  Country: US (occurrence: None)
  Receive Date: 20240906
  Receipt Date: 20240906
  Transmission Date: 20241016
  Serious: No
  Sender: DOMPE FARMACEUTICI
  Company Number: US-FARMAPROD-202309-2781

PATIENT
  Sex: Female

DRUGS (28)
  1. OXERVATE [Suspect]
     Active Substance: CENEGERMIN-BKBJ
     Indication: Neurotrophic keratopathy
     Route: 047
     Dates: start: 20230906
  2. PREVACID [Concomitant]
     Active Substance: LANSOPRAZOLE
     Dosage: 24 HOURS
  3. DIOVAN [Concomitant]
     Active Substance: VALSARTAN
  4. L-GLUTAMINE [Concomitant]
     Active Substance: GLUTAMINE
  5. XYZAL [Concomitant]
     Active Substance: LEVOCETIRIZINE DIHYDROCHLORIDE
  6. ALLEGRA D-12 HOUR [Concomitant]
     Active Substance: FEXOFENADINE HYDROCHLORIDE\PSEUDOEPHEDRINE HYDROCHLORIDE
  7. IRON [Concomitant]
     Active Substance: IRON
     Dosage: 159 (45) MG
  8. QUERCETIN [Concomitant]
     Active Substance: QUERCETIN
  9. CALCIUM [Concomitant]
     Active Substance: CALCIUM
     Dosage: 500(1250)
  10. VITAMINS [Concomitant]
     Active Substance: VITAMINS
  11. VITAMIN D3 [Concomitant]
     Active Substance: CHOLECALCIFEROL
  12. CURCUMIN [Concomitant]
     Active Substance: CURCUMIN
  13. FLAXSEED [Concomitant]
     Active Substance: FLAX SEED
  14. VITAMIN C [Concomitant]
     Active Substance: ASCORBIC ACID
  15. IPRATROPIUM BROMIDE [Concomitant]
     Active Substance: IPRATROPIUM BROMIDE\IPRATROPIUM BROMIDE ANHYDROUS
     Dosage: SPRAY
  16. FLONASE ALLERGY RELIEF [Concomitant]
     Active Substance: FLUTICASONE PROPIONATE
  17. TYRVAYA [Concomitant]
     Active Substance: VARENICLINE TARTRATE
     Dosage: 0.03/SPRAY
  18. REFRESH OPTIVE [Concomitant]
     Active Substance: CARBOXYMETHYLCELLULOSE SODIUM\GLYCERIN
     Dosage: 0.5%-0.9%
  19. SYSTANE (HYPROMELLOSE 2910 (4000 MPA.S)) [Concomitant]
     Active Substance: HYPROMELLOSE 2910 (4000 MPA.S)
     Dosage: 0.3 %-0.4%
  20. PATADAY [Concomitant]
     Active Substance: OLOPATADINE HYDROCHLORIDE
  21. LOTEMAX SM [Concomitant]
     Active Substance: LOTEPREDNOL ETABONATE
  22. XIIDRA [Concomitant]
     Active Substance: LIFITEGRAST
  23. EYSUVIS [Concomitant]
     Active Substance: LOTEPREDNOL ETABONATE
  24. DUPIXENT [Concomitant]
     Active Substance: DUPILUMAB
  25. UNSPECIFIED INGREDIENT [Concomitant]
     Active Substance: UNSPECIFIED INGREDIENT
  26. Z-BINDER [Concomitant]
  27. COMPLETE VISION FORMULA [Concomitant]
  28. IVIZIA [Concomitant]
     Active Substance: POVIDONE

REACTIONS (6)
  - Eyelid pain [Unknown]
  - Eyelid irritation [Unknown]
  - Eye pruritus [Unknown]
  - Accidental overdose [Unknown]
  - Eye pain [Unknown]
  - Ocular hyperaemia [Unknown]
